FAERS Safety Report 17319903 (Version 1)
Quarter: 2020Q1

REPORT INFORMATION
  Report Type: Spontaneous
  Country: US (occurrence: US)
  Receive Date: 20200126
  Receipt Date: 20200126
  Transmission Date: 20200409
  Serious: Yes (Other)
  Sender: FDA-Public Use
  Company Number: US-TEVA-2020-US-1173938

PATIENT
  Age: 55 Year
  Sex: Female

DRUGS (1)
  1. ALYQ [Suspect]
     Active Substance: TADALAFIL
     Route: 065

REACTIONS (7)
  - Weight decreased [Unknown]
  - Hypersomnia [Unknown]
  - Renal disorder [Unknown]
  - Nausea [Unknown]
  - Chest pain [Unknown]
  - Decreased appetite [Unknown]
  - Visual impairment [Unknown]
